FAERS Safety Report 17383208 (Version 1)
Quarter: 2020Q1

REPORT INFORMATION
  Report Type: Spontaneous
  Country: US (occurrence: US)
  Receive Date: 20200206
  Receipt Date: 20200206
  Transmission Date: 20200409
  Serious: No
  Sender: FDA-Public Use
  Company Number: US-ABBVIE-19K-163-2972389-00

PATIENT
  Age: 38 Year
  Sex: Female
  Weight: 73.09 kg

DRUGS (4)
  1. HUMIRA [Suspect]
     Active Substance: ADALIMUMAB
     Indication: POUCHITIS
     Dosage: SECOND LOADING DOSE
     Route: 058
     Dates: start: 20191017, end: 20191017
  2. HUMIRA [Suspect]
     Active Substance: ADALIMUMAB
     Indication: ANAL FISSURE
  3. HUMIRA [Suspect]
     Active Substance: ADALIMUMAB
     Indication: COLITIS ULCERATIVE
     Dosage: LOADING DOSE
     Route: 058
     Dates: start: 20191002, end: 20191002
  4. HUMIRA [Suspect]
     Active Substance: ADALIMUMAB
     Indication: ANASTOMOTIC ULCER

REACTIONS (2)
  - Injection site bruising [Recovered/Resolved]
  - Device issue [Unknown]

NARRATIVE: CASE EVENT DATE: 20191002
